FAERS Safety Report 13757208 (Version 1)
Quarter: 2017Q3

REPORT INFORMATION
  Report Type: Spontaneous
  Country: US (occurrence: US)
  Receive Date: 20170714
  Receipt Date: 20170714
  Transmission Date: 20171127
  Serious: Yes (Hospitalization)
  Sender: FDA-Public Use
  Company Number: None

PATIENT
  Age: 76 Year
  Sex: Female
  Weight: 71.5 kg

DRUGS (1)
  1. NIVOLUMAB [Suspect]
     Active Substance: NIVOLUMAB
     Indication: CHOLANGIOCARCINOMA
     Dosage: ?          OTHER DOSE:MG;OTHER FREQUENCY:EVERY 2 WEEKS;?
     Route: 042
     Dates: start: 20170329, end: 20170705

REACTIONS (3)
  - Mass [None]
  - Nerve compression [None]
  - Renal pain [None]

NARRATIVE: CASE EVENT DATE: 20170710
